FAERS Safety Report 5228528-5 (Version None)
Quarter: 2007Q1

REPORT INFORMATION
  Report Type: 
  Country: None (occurrence: None)
  Receive Date: 20070205
  Receipt Date: 20070129
  Transmission Date: 20070707
  Serious: Yes (Death, Hospitalization)
  Sender: FDA-Public Use
  Company Number: JP-AVENTIS-200710062JP

PATIENT
  Age: 74 Year
  Sex: Female

DRUGS (7)
  1. ARAVA [Suspect]
     Indication: RHEUMATOID ARTHRITIS
     Route: 048
     Dates: start: 20030101, end: 20070104
  2. MOBIC [Concomitant]
     Indication: RHEUMATOID ARTHRITIS
     Route: 048
     Dates: start: 20030101, end: 20060327
  3. CEFZON [Concomitant]
     Indication: GASTRITIS
     Route: 048
     Dates: start: 20060919, end: 20070104
  4. VOLTAREN [Concomitant]
     Indication: RHEUMATOID ARTHRITIS
     Route: 048
     Dates: start: 20060425, end: 20070104
  5. TAKEPRON [Concomitant]
     Indication: GASTRITIS
     Route: 048
     Dates: start: 20060425, end: 20070104
  6. MAGMITT [Concomitant]
     Indication: CONSTIPATION
     Route: 048
     Dates: start: 20060223, end: 20070104
  7. DEPAS [Concomitant]
     Route: 048
     Dates: end: 20070104

REACTIONS (3)
  - BRAIN DEATH [None]
  - INJURY ASPHYXIATION [None]
  - PNEUMONIA HAEMOPHILUS [None]
